FAERS Safety Report 9953623 (Version 1)
Quarter: 2014Q1

REPORT INFORMATION
  Report Type: Spontaneous
  Country: US (occurrence: US)
  Receive Date: 20140304
  Receipt Date: 20140304
  Transmission Date: 20141002
  Serious: No
  Sender: FDA-Public Use
  Company Number: US-AMGEN-USASP2013091250

PATIENT
  Age: 65 Year
  Sex: Female

DRUGS (8)
  1. ENBREL [Suspect]
     Indication: PRODUCT USED FOR UNKNOWN INDICATION
     Dosage: 50 MG, QWK
     Route: 058
  2. TEMAZEPAM [Concomitant]
     Dosage: 15 MG, UNK
  3. TYLENOL                            /00020001/ [Concomitant]
     Dosage: 325 MG, UNK
  4. VITAMIN D                          /00107901/ [Concomitant]
     Dosage: 5000 UNIT, UNK
  5. METHOTREXATE [Concomitant]
     Dosage: 50 MG/2 ML
  6. FOLIC ACID [Concomitant]
     Dosage: UNK
  7. CALCIUM [Concomitant]
     Dosage: UNK
  8. BABY ASPIRIN [Concomitant]
     Dosage: 81 MG, UNK

REACTIONS (4)
  - Feeling abnormal [Unknown]
  - Tinnitus [Unknown]
  - Injection site bruising [Unknown]
  - Injection site pain [Unknown]
